FAERS Safety Report 6438335-3 (Version None)
Quarter: 2009Q4

REPORT INFORMATION
  Report Type: 
  Country: None (occurrence: None)
  Receive Date: 20091112
  Receipt Date: 20081218
  Transmission Date: 20100525
  Serious: Yes (Other)
  Sender: FDA-Public Use
  Company Number: PHHY2008GB30344

PATIENT
  Age: 60 Year
  Sex: Female

DRUGS (7)
  1. BACLOFEN [Suspect]
     Indication: MULTIPLE SCLEROSIS
     Dosage: 50 MG/DAY
     Route: 048
  2. BACLOFEN [Suspect]
     Dosage: 60 MG/DAY
  3. CARBAMAZEPINE [Suspect]
     Dosage: 200 MG, TID
     Route: 048
  4. ACETAMINOPHEN [Concomitant]
     Dosage: 1 G, QID
     Route: 048
  5. TRIMETHOPRIM [Concomitant]
     Dosage: 100 MG, BID
     Route: 048
  6. BISOPROLOL [Concomitant]
     Dosage: 5 MG, QD
     Route: 048
  7. CITALOPRAM [Concomitant]
     Dosage: 10 MG, QD
     Route: 048

REACTIONS (2)
  - DYSPHAGIA [None]
  - PNEUMONIA [None]
